FAERS Safety Report 22305006 (Version 2)
Quarter: 2023Q2

REPORT INFORMATION
  Report Type: Spontaneous
  Country: GB (occurrence: None)
  Receive Date: 20230510
  Receipt Date: 20230614
  Transmission Date: 20230721
  Serious: Yes (Other)
  Sender: FDA-Public Use
  Company Number: 2023A105421

PATIENT
  Sex: Male

DRUGS (1)
  1. OMEPRAZOLE [Suspect]
     Active Substance: OMEPRAZOLE
     Route: 048

REACTIONS (12)
  - Gilbert^s syndrome [Unknown]
  - Blood sodium abnormal [Unknown]
  - Blood potassium abnormal [Unknown]
  - Blood urea abnormal [Unknown]
  - Blood creatinine abnormal [Unknown]
  - Glomerular filtration rate abnormal [Unknown]
  - Haemoglobin abnormal [Unknown]
  - Blood pH abnormal [Unknown]
  - White blood cell count abnormal [Unknown]
  - Blood alkaline phosphatase increased [Unknown]
  - Alanine aminotransferase increased [Unknown]
  - General physical health deterioration [Unknown]
